FAERS Safety Report 6795907-4 (Version None)
Quarter: 2010Q2

REPORT INFORMATION
  Report Type: 
  Country: None (occurrence: None)
  Receive Date: 20100625
  Receipt Date: 20100621
  Transmission Date: 20101027
  Serious: Yes (Other)
  Sender: FDA-Public Use
  Company Number: A0866993A

PATIENT
  Age: 11 Year
  Sex: Male

DRUGS (1)
  1. ADVAIR DISKUS 100/50 [Suspect]
     Indication: ASTHMA
     Route: 055
     Dates: end: 20060101

REACTIONS (12)
  - ABNORMAL BEHAVIOUR [None]
  - ANGER [None]
  - DEPRESSION [None]
  - HYPERAESTHESIA [None]
  - IRRITABILITY [None]
  - MENTAL IMPAIRMENT [None]
  - MOOD SWINGS [None]
  - NIGHTMARE [None]
  - SUICIDAL IDEATION [None]
  - SUICIDE ATTEMPT [None]
  - TIC [None]
  - TREMOR [None]
